FAERS Safety Report 6556983-7 (Version None)
Quarter: 2010Q1

REPORT INFORMATION
  Report Type: 
  Country: None (occurrence: None)
  Receive Date: 20100126
  Receipt Date: 20100113
  Transmission Date: 20100710
  Serious: Yes (Death, Hospitalization)
  Sender: FDA-Public Use
  Company Number: 2009AC000088

PATIENT
  Age: 64 Year
  Sex: Female

DRUGS (40)
  1. DIGOXIN [Suspect]
     Dosage: 0. 25 MG; QD; PO
     Route: 048
  2. ATENOLOL [Concomitant]
  3. ZESTRIL [Concomitant]
  4. ASPIRIN [Concomitant]
  5. ISORDIL [Concomitant]
  6. NITROGLYCERIN [Concomitant]
  7. CLINIDINE [Concomitant]
  8. VENTOLIN [Concomitant]
  9. PROZAC [Concomitant]
  10. METOPROLOL TARTRATE [Concomitant]
  11. CIPROFLOXACIN [Concomitant]
  12. MIRTAZAPINE [Concomitant]
  13. LISINOPRIL [Concomitant]
  14. TRAZODONE HCL [Concomitant]
  15. MINITRAN [Concomitant]
  16. HYDROCODONE [Concomitant]
  17. METHOCARBAMOL [Concomitant]
  18. ISOSORBIDE [Concomitant]
  19. FLUOXETINE [Concomitant]
  20. LOVASTATIN [Concomitant]
  21. DOXYCYCLINE [Concomitant]
  22. ERYTHROMYCIN [Concomitant]
  23. PROPOXYPHENE HCL [Concomitant]
  24. CODEINE SULFATE [Concomitant]
  25. PREDNISONE [Concomitant]
  26. PRINIVIL [Concomitant]
  27. AMOXICILLIN [Concomitant]
  28. PLAVIX [Concomitant]
  29. ZOCOR [Concomitant]
  30. GUTAFENESIN [Concomitant]
  31. VANTIN [Concomitant]
  32. AZMACORT [Concomitant]
  33. CARISOPRODOL [Concomitant]
  34. IBUPROFEN [Concomitant]
  35. ACETAMINOPHEN [Concomitant]
  36. DIAZEPAM [Concomitant]
  37. MEDROXYPROGESTERONE [Concomitant]
  38. ESTRACE [Concomitant]
  39. WELLBUTRIN [Concomitant]
  40. CATAPRES [Concomitant]

REACTIONS (9)
  - ANHEDONIA [None]
  - DEPRESSED LEVEL OF CONSCIOUSNESS [None]
  - ECONOMIC PROBLEM [None]
  - INJURY [None]
  - ISCHAEMIC CARDIOMYOPATHY [None]
  - MEMORY IMPAIRMENT [None]
  - MYOCARDIAL INFARCTION [None]
  - PAIN IN EXTREMITY [None]
  - URINARY TRACT INFECTION [None]
